FAERS Safety Report 4351007-4 (Version None)
Quarter: 2004Q2

REPORT INFORMATION
  Report Type: 
  Country: None (occurrence: None)
  Receive Date: 20040427
  Receipt Date: 20040413
  Transmission Date: 20050107
  Serious: Yes (Disabling)
  Sender: FDA-Public Use
  Company Number: 310001M04DNK

PATIENT
  Age: 28 Year
  Sex: Female

DRUGS (4)
  1. GONAL-F [Suspect]
     Indication: INFERTILITY FEMALE
     Dosage: 75 IU, 1 IN 1 DAYS
     Route: 058
     Dates: start: 20030923, end: 20030926
  2. BUSERELIN ACETATE [Concomitant]
  3. CHORIOGONADOTROPIN ALFA [Concomitant]
  4. PROGESTERONE GEL (PROGESTERONE) [Concomitant]

REACTIONS (3)
  - CEREBRAL ARTERY THROMBOSIS [None]
  - HEMIANOPIA HOMONYMOUS [None]
  - PREGNANCY [None]
